FAERS Safety Report 18991736 (Version 5)
Quarter: 2021Q2

REPORT INFORMATION
  Report Type: Report from Study
  Country: US (occurrence: US)
  Receive Date: 20210310
  Receipt Date: 20210531
  Transmission Date: 20210717
  Serious: Yes (Other)
  Sender: FDA-Public Use
  Company Number: NVSC2021US053352

PATIENT
  Sex: Female

DRUGS (1)
  1. PIQRAY [Suspect]
     Active Substance: ALPELISIB
     Indication: PRODUCT USED FOR UNKNOWN INDICATION
     Dosage: UNK
     Route: 048

REACTIONS (11)
  - Oral pain [Recovered/Resolved]
  - Abdominal discomfort [Unknown]
  - Influenza like illness [Unknown]
  - Diarrhoea [Recovered/Resolved]
  - Emotional disorder [Unknown]
  - Decreased appetite [Recovered/Resolved]
  - Fatigue [Unknown]
  - Neoplasm malignant [Unknown]
  - Stress [Unknown]
  - Diarrhoea [Unknown]
  - Product dose omission issue [Unknown]
